FAERS Safety Report 9443415 (Version 2)
Quarter: 2013Q3

REPORT INFORMATION
  Report Type: Spontaneous
  Country: FR (occurrence: FR)
  Receive Date: 20130806
  Receipt Date: 20130910
  Transmission Date: 20140515
  Serious: Yes (Hospitalization)
  Sender: FDA-Public Use
  Company Number: FR-GLAXOSMITHKLINE-B0912257A

PATIENT
  Age: 73 Year
  Sex: Male

DRUGS (13)
  1. SERETIDE DISKUS [Suspect]
     Indication: CHRONIC OBSTRUCTIVE PULMONARY DISEASE
     Route: 055
  2. RIFADINE [Suspect]
     Indication: STAPHYLOCOCCAL INFECTION
     Route: 048
     Dates: start: 20130628, end: 20130708
  3. GENTAMICINE [Suspect]
     Indication: BACTERIAL INFECTION
     Dosage: 240MG PER DAY
     Route: 065
     Dates: start: 20130704, end: 20130708
  4. LEVOFLOXACIN [Suspect]
     Indication: BACTERIAL INFECTION
     Route: 048
     Dates: start: 20130704
  5. LEVOTHYROX [Suspect]
     Indication: HYPOTHYROIDISM
     Dosage: 87.5MCG PER DAY
     Route: 048
  6. PREVISCAN (FLUINDIONE) [Suspect]
     Indication: PRODUCT USED FOR UNKNOWN INDICATION
     Dosage: .75MG PER DAY
     Route: 048
     Dates: end: 20130708
  7. CORDARONE [Suspect]
     Indication: ATRIAL FIBRILLATION
     Dosage: 200MG SEE DOSAGE TEXT
     Route: 048
  8. CARDENSIEL [Suspect]
     Indication: HYPERTENSION
     Dosage: 5MG PER DAY
     Route: 048
  9. ZYLORIC [Suspect]
     Indication: HYPERURICAEMIA
     Dosage: 200MG PER DAY
     Route: 048
  10. LASILIX [Suspect]
     Indication: HYPERTENSION
     Dosage: 40MG PER DAY
     Route: 048
  11. EUPANTOL [Suspect]
     Indication: ULCER
     Dosage: 40MG PER DAY
     Route: 048
  12. BRICANYL [Suspect]
     Indication: CHRONIC OBSTRUCTIVE PULMONARY DISEASE
     Route: 065
     Dates: start: 20130626
  13. ATROVENT [Suspect]
     Indication: CHRONIC OBSTRUCTIVE PULMONARY DISEASE
     Route: 065
     Dates: start: 20130626

REACTIONS (2)
  - Hepatitis [Recovered/Resolved]
  - Transaminases increased [Recovered/Resolved]
